FAERS Safety Report 7256752-9 (Version None)
Quarter: 2011Q1

REPORT INFORMATION
  Report Type: 
  Country: None (occurrence: None)
  Receive Date: 20110129
  Receipt Date: 20100721
  Transmission Date: 20110831
  Serious: No
  Sender: FDA-Public Use
  Company Number: US-ABBOTT-10P-163-0659363-00

PATIENT
  Sex: Male
  Weight: 110.32 kg

DRUGS (9)
  1. VITAMIN D [Concomitant]
     Indication: VITAMIN SUPPLEMENTATION
  2. HUMIRA [Suspect]
     Indication: PSORIATIC ARTHROPATHY
     Dates: start: 20080101
  3. ATENOLOL [Concomitant]
     Indication: HYPERTENSION
  4. PREDNISONE [Concomitant]
     Indication: PSORIATIC ARTHROPATHY
  5. ASCORBIC ACID [Concomitant]
     Indication: VITAMIN SUPPLEMENTATION
  6. FENOFIBRATE [Concomitant]
     Indication: BLOOD CHOLESTEROL INCREASED
  7. FOLIC ACID [Concomitant]
     Indication: VITAMIN SUPPLEMENTATION
  8. VITAMIN A [Concomitant]
     Indication: VITAMIN SUPPLEMENTATION
  9. LOMOTIL [Concomitant]
     Indication: PRODUCT USED FOR UNKNOWN INDICATION

REACTIONS (3)
  - RHEUMATOID ARTHRITIS [None]
  - PAIN [None]
  - ARTHRALGIA [None]
